FAERS Safety Report 11607311 (Version 1)
Quarter: 2015Q4

REPORT INFORMATION
  Report Type: Report from Study
  Country: AU (occurrence: AU)
  Receive Date: 20151007
  Receipt Date: 20151007
  Transmission Date: 20160304
  Serious: Yes (Hospitalization, Other)
  Sender: FDA-Public Use
  Company Number: PHHY2012AU028501

PATIENT
  Sex: Female

DRUGS (4)
  1. CLOZARIL [Suspect]
     Active Substance: CLOZAPINE
     Indication: PRODUCT USED FOR UNKNOWN INDICATION
     Dosage: 100 MG
     Route: 048
     Dates: start: 20090310, end: 20120321
  2. CLOZARIL [Suspect]
     Active Substance: CLOZAPINE
     Dosage: 100 MG
     Route: 048
     Dates: start: 20120518, end: 20120526
  3. CLOZARIL [Suspect]
     Active Substance: CLOZAPINE
     Dosage: 175 MG
     Route: 048
     Dates: start: 20120527, end: 20120530
  4. PHENYTOIN. [Suspect]
     Active Substance: PHENYTOIN
     Indication: PRODUCT USED FOR UNKNOWN INDICATION
     Dosage: UNK
     Route: 065
     Dates: end: 20120321

REACTIONS (9)
  - Neutropenia [Recovered/Resolved]
  - General physical health deterioration [Unknown]
  - Malaise [Unknown]
  - Blood count abnormal [Unknown]
  - Seizure [Unknown]
  - Cardiac arrest [Unknown]
  - Paranoia [Recovering/Resolving]
  - Neuroleptic malignant syndrome [Recovering/Resolving]
  - Myocarditis [Unknown]
